FAERS Safety Report 5977622-X (Version None)
Quarter: 2008Q4

REPORT INFORMATION
  Report Type: 
  Country: None (occurrence: None)
  Receive Date: 20081124
  Receipt Date: 20081117
  Transmission Date: 20090506
  Serious: No
  Sender: FDA-Public Use
  Company Number: 08H-163-0315193-00

PATIENT
  Age: 63 Year
  Sex: Female

DRUGS (1)
  1. LIDOCAINE 1% [Suspect]
     Indication: LOCAL ANAESTHESIA
     Dosage: SINGLE DOSE
     Dates: start: 20081113, end: 20081113

REACTIONS (4)
  - DIZZINESS [None]
  - HYPERGLYCAEMIA [None]
  - ORTHOSTATIC HYPOTENSION [None]
  - UNEVALUABLE EVENT [None]
